FAERS Safety Report 16402820 (Version 2)
Quarter: 2019Q3

REPORT INFORMATION
  Report Type: Spontaneous
  Country: US (occurrence: US)
  Receive Date: 20190607
  Receipt Date: 20190718
  Transmission Date: 20191004
  Serious: Yes (Other)
  Sender: FDA-Public Use
  Company Number: US-JNJFOC-20190535419

PATIENT
  Sex: Male

DRUGS (8)
  1. ZYTIGA [Suspect]
     Active Substance: ABIRATERONE ACETATE
     Indication: PRODUCT USED FOR UNKNOWN INDICATION
     Dosage: 250 MG X 4 TABLETS
     Route: 048
     Dates: start: 201708
  2. MILK THISTLE PLUS                  /08512201/ [Concomitant]
     Dosage: 2 CAPSULES TWICE DAILY WITHOUT FOOD
     Route: 065
  3. MECOBALAMIN [Concomitant]
     Active Substance: METHYLCOBALAMIN
     Dosage: 1 CAPSULE DAILY
     Route: 048
  4. LYCOMAX [Concomitant]
     Dosage: 1 CAPSULE TWICE DAILY WITH FOOD
     Route: 065
  5. PROEPA GESTA [Concomitant]
     Dosage: 3 SOFT GELS TWICE DAILY
     Route: 065
  6. BETAINE [Concomitant]
     Active Substance: BETAINE
     Dosage: 2 CAPSULES
     Route: 065
  7. UBIQUINOL [Concomitant]
     Active Substance: UBIQUINOL
     Dosage: 2 TABLETS TWICE DAILY
     Route: 065
  8. LIQUID ZINC [Concomitant]
     Route: 065

REACTIONS (2)
  - Malignant neoplasm progression [Unknown]
  - Hot flush [Unknown]
